FAERS Safety Report 8141599-1 (Version None)
Quarter: 2012Q1

REPORT INFORMATION
  Report Type: 
  Country: None (occurrence: None)
  Receive Date: 20120103
  Receipt Date: 20111023
  Transmission Date: 20120608
  Serious: No
  Sender: FDA-Public Use
  Company Number: AE-2011-002594

PATIENT
  Age: 30 Year
  Sex: Female
  Weight: 78.9259 kg

DRUGS (7)
  1. PEGASYS [Concomitant]
  2. OMEPRAZOLE [Concomitant]
  3. INCIVEK [Suspect]
     Dosage: (2 TABS T.I.D.),ORAL
     Route: 048
     Dates: start: 20110928
  4. KLONOPIN [Concomitant]
  5. RIBAVIRIN [Concomitant]
  6. PAXIL [Concomitant]
  7. IBUPROFEN [Concomitant]

REACTIONS (3)
  - RASH [None]
  - DRY SKIN [None]
  - PRURITUS [None]
